FAERS Safety Report 22186704 (Version 2)
Quarter: 2024Q3

REPORT INFORMATION
  Report Type: Spontaneous
  Country: US (occurrence: US)
  Receive Date: 20230407
  Receipt Date: 20240730
  Transmission Date: 20241016
  Serious: Yes (Other)
  Sender: ALVOGEN
  Company Number: US-BMS-IMIDS-REMS_SI-10269150

PATIENT
  Sex: Female
  Weight: 83 kg

DRUGS (6)
  1. LENALIDOMIDE [Suspect]
     Active Substance: LENALIDOMIDE
     Indication: Plasma cell myeloma
     Dosage: FREQUENCY: 28
     Dates: start: 20220907
  2. Multivitamin Iron-Free [Concomitant]
     Indication: Product used for unknown indication
     Route: 048
  3. TYLENOL [Concomitant]
     Active Substance: ACETAMINOPHEN
     Indication: Product used for unknown indication
     Route: 048
  4. ZOMETA [Concomitant]
     Active Substance: ZOLEDRONIC ACID
     Indication: Product used for unknown indication
     Dosage: ONCE EVERY 3 MONTHS
  5. ASPIRIN [Concomitant]
     Active Substance: ASPIRIN
     Indication: Product used for unknown indication
  6. VALACYCLOVIR [Concomitant]
     Active Substance: VALACYCLOVIR HYDROCHLORIDE
     Indication: Product used for unknown indication

REACTIONS (5)
  - Blood glucose increased [Unknown]
  - Blood creatine decreased [Unknown]
  - Monocyte percentage increased [Unknown]
  - Monocyte count increased [Unknown]
  - Human chorionic gonadotropin increased [Unknown]
